FAERS Safety Report 23328440 (Version 1)
Quarter: 2023Q4

REPORT INFORMATION
  Report Type: Spontaneous
  Country: US (occurrence: US)
  Receive Date: 20231221
  Receipt Date: 20231221
  Transmission Date: 20240110
  Serious: Yes (Hospitalization)
  Sender: FDA-Public Use
  Company Number: US-SANDOZ-SDZ2023US070909

PATIENT
  Age: 51 Year
  Sex: Female

DRUGS (7)
  1. REGLAN [Suspect]
     Active Substance: METOCLOPRAMIDE HYDROCHLORIDE
     Indication: Vomiting
     Route: 065
  2. REMODULIN [Suspect]
     Active Substance: TREPROSTINIL
     Indication: Pulmonary arterial hypertension
     Dosage: 0.008 UG/KG, CONT
     Route: 058
     Dates: start: 202311
  3. REMODULIN [Suspect]
     Active Substance: TREPROSTINIL
     Dosage: 0.00708 UG/KG, CONTINUING
     Route: 058
     Dates: start: 2023
  4. REMODULIN [Suspect]
     Active Substance: TREPROSTINIL
     Dosage: 0.00813UG/KG(PUMP RATE OF 39UL/HR),CONTINUING
     Route: 058
     Dates: start: 20230112
  5. REMODULIN [Suspect]
     Active Substance: TREPROSTINIL
     Dosage: 34 UL/HR, CONT
     Route: 058
     Dates: start: 2023
  6. REMODULIN [Suspect]
     Active Substance: TREPROSTINIL
     Dosage: UNK, CONTINUING
     Route: 058
     Dates: start: 202311
  7. ZOFRAN [Suspect]
     Active Substance: ONDANSETRON HYDROCHLORIDE
     Indication: Vomiting
     Route: 065

REACTIONS (3)
  - Vomiting [Not Recovered/Not Resolved]
  - Headache [Unknown]
  - Therapy non-responder [Unknown]

NARRATIVE: CASE EVENT DATE: 20231202
